FAERS Safety Report 21027288 (Version 2)
Quarter: 2022Q3

REPORT INFORMATION
  Report Type: Spontaneous
  Country: FR (occurrence: FR)
  Receive Date: 20220630
  Receipt Date: 20220708
  Transmission Date: 20221026
  Serious: Yes (Hospitalization)
  Sender: FDA-Public Use
  Company Number: FR-PFIZER INC-202200905643

PATIENT
  Age: 8 Decade
  Sex: Female
  Weight: 55 kg

DRUGS (8)
  1. GEMCITABINE HYDROCHLORIDE [Suspect]
     Active Substance: GEMCITABINE HYDROCHLORIDE
     Indication: Pancreatic carcinoma metastatic
     Dosage: 1 DF, WEEKLY
     Route: 051
     Dates: start: 202108, end: 20210825
  2. LEVOTHYROXINE [Concomitant]
     Active Substance: LEVOTHYROXINE
     Dosage: 1 TABLET MONDAY, WEDNESDAY AND FRIDAY
  3. LEVOTHYROXINE [Concomitant]
     Active Substance: LEVOTHYROXINE
     Dosage: 1 TABLET TUESDAY, THURSDAY, SATURDAY AND SUNDAY
  4. PROTHIADEN [Concomitant]
     Active Substance: DOTHIEPIN HYDROCHLORIDE
     Dosage: 1 DF,  3 DAYS/WEEK
  5. EPREX [Concomitant]
     Active Substance: ERYTHROPOIETIN
     Dosage: 1 DF, WEEKLY
     Route: 058
  6. CLINUTREN DESSERT GOURMAND [Concomitant]
     Dosage: 2 DF, DAILY
  7. ONDANSETRON [Concomitant]
     Active Substance: ONDANSETRON
     Dosage: 1 DF, 2X/DAY, MORNING AND EVENING
  8. VOGALENE [Concomitant]
     Active Substance: METOPIMAZINE
     Dosage: 1 DF, 3X/DAY, IF NAUSEA

REACTIONS (2)
  - General physical health deterioration [Unknown]
  - Diarrhoea [Unknown]

NARRATIVE: CASE EVENT DATE: 20210830
